FAERS Safety Report 6629027-6 (Version None)
Quarter: 2010Q1

REPORT INFORMATION
  Report Type: 
  Country: None (occurrence: None)
  Receive Date: 20100311
  Receipt Date: 20090812
  Transmission Date: 20100710
  Serious: No
  Sender: FDA-Public Use
  Company Number: US-BIOGENIDEC-2009BI025282

PATIENT
  Age: 39 Year
  Sex: Female

DRUGS (5)
  1. AVONEX [Suspect]
     Indication: MULTIPLE SCLEROSIS
     Route: 030
     Dates: start: 20090401, end: 20090401
  2. AVONEX [Suspect]
     Route: 030
     Dates: start: 20090401, end: 20090101
  3. AVONEX [Suspect]
     Route: 030
     Dates: start: 20090101, end: 20090601
  4. ZOLOFT [Concomitant]
     Indication: DEPRESSION
     Route: 048
     Dates: start: 20090501
  5. DIPRIVAN [Concomitant]
     Indication: MICTURITION URGENCY

REACTIONS (7)
  - DECREASED APPETITE [None]
  - DEPRESSION [None]
  - DYSPNOEA [None]
  - FALL [None]
  - GAIT DISTURBANCE [None]
  - INFLUENZA LIKE ILLNESS [None]
  - WEIGHT DECREASED [None]
